FAERS Safety Report 7138478-5 (Version None)
Quarter: 2010Q4

REPORT INFORMATION
  Report Type: 
  Country: None (occurrence: None)
  Receive Date: 20101206
  Receipt Date: 20101202
  Transmission Date: 20110411
  Serious: Yes (Death, Other)
  Sender: FDA-Public Use
  Company Number: PHHY2010BR40146

PATIENT
  Sex: Female

DRUGS (4)
  1. DIOVAN [Suspect]
     Indication: HYPERTENSION
     Dosage: 1 TABLET, A DAY
     Route: 048
  2. PANTOPRAZOLE SODIUM [Concomitant]
     Indication: GASTRIC DISORDER
     Dosage: 1 TABLET (40 MG), A DAY
     Route: 048
  3. ANGIPRESS [Concomitant]
     Indication: CARDIAC DISORDER
     Dosage: 1 TABLET (100 MG), A DAY
     Route: 048
  4. HUMULIN R [Concomitant]
     Indication: TYPE 2 DIABETES MELLITUS
     Dosage: 30 IU, A DAY
     Route: 058

REACTIONS (12)
  - ABDOMINAL PAIN [None]
  - DIABETIC COMPLICATION [None]
  - METASTASES TO BLADDER [None]
  - METASTASES TO BONE [None]
  - METASTASES TO GASTROINTESTINAL TRACT [None]
  - METASTASES TO KIDNEY [None]
  - METASTASES TO LIVER [None]
  - METASTASES TO LUNG [None]
  - METASTASES TO PANCREAS [None]
  - METASTATIC NEOPLASM [None]
  - MULTI-ORGAN FAILURE [None]
  - OBESITY [None]
